FAERS Safety Report 15306036 (Version 1)
Quarter: 2018Q3

REPORT INFORMATION
  Report Type: Spontaneous
  Country: US (occurrence: US)
  Receive Date: 20180822
  Receipt Date: 20180822
  Transmission Date: 20181010
  Serious: Yes (Hospitalization, Other)
  Sender: FDA-Public Use
  Company Number: US-ABBVIE-18K-163-2450940-00

PATIENT
  Sex: Female

DRUGS (6)
  1. HUMIRA [Suspect]
     Active Substance: ADALIMUMAB
     Route: 058
  2. CANNABIS OIL [Concomitant]
     Active Substance: CANNABIS SATIVA SEED OIL
     Indication: PRODUCT USED FOR UNKNOWN INDICATION
  3. ENTYVIO [Suspect]
     Active Substance: VEDOLIZUMAB
     Indication: COLITIS ULCERATIVE
     Route: 065
  4. HUMIRA [Suspect]
     Active Substance: ADALIMUMAB
     Indication: COLITIS ULCERATIVE
     Route: 058
  5. METHOTREXATE. [Suspect]
     Active Substance: METHOTREXATE
     Indication: PRODUCT USED FOR UNKNOWN INDICATION
     Route: 065
  6. TACROLIMUS. [Suspect]
     Active Substance: TACROLIMUS
     Indication: PRODUCT USED FOR UNKNOWN INDICATION
     Route: 065

REACTIONS (11)
  - Psoriatic arthropathy [Not Recovered/Not Resolved]
  - Pneumonia [Unknown]
  - Drug ineffective [Unknown]
  - Fatigue [Unknown]
  - Proctitis [Recovering/Resolving]
  - Endocrine ophthalmopathy [Not Recovered/Not Resolved]
  - Psoriasis [Not Recovered/Not Resolved]
  - Uveitis [Not Recovered/Not Resolved]
  - Vomiting [Unknown]
  - Frequent bowel movements [Unknown]
  - Anxiety [Unknown]
